FAERS Safety Report 4673300-8 (Version None)
Quarter: 2005Q2

REPORT INFORMATION
  Report Type: 
  Country: None (occurrence: None)
  Receive Date: 20050525
  Receipt Date: 20050518
  Transmission Date: 20051028
  Serious: Yes (Hospitalization, Other)
  Sender: FDA-Public Use
  Company Number: PHEH2005US05661

PATIENT
  Age: 49 Year
  Sex: Female
  Weight: 54 kg

DRUGS (5)
  1. TRILEPTAL [Suspect]
     Dosage: 300 MG, QD
     Route: 048
     Dates: start: 20050331, end: 20050507
  2. RITALIN - SLOW RELEASE [Concomitant]
     Dosage: 30 MG, QD
     Dates: start: 20050203
  3. METHYLPHENIDATE HCL [Concomitant]
     Dosage: 10 MG, PRN
  4. ZOLOFT [Suspect]
     Dosage: 100 MG, QD
     Route: 048
     Dates: end: 20050428
  5. ZOLOFT [Suspect]
     Dosage: 200 MG, QD
     Route: 048
     Dates: start: 20050429, end: 20050507

REACTIONS (4)
  - BLOOD SODIUM DECREASED [None]
  - DRUG INTERACTION [None]
  - FOOD INTERACTION [None]
  - HEADACHE [None]
